FAERS Safety Report 18572635 (Version 1)
Quarter: 2020Q4

REPORT INFORMATION
  Report Type: Spontaneous
  Country: FR (occurrence: FR)
  Receive Date: 20201203
  Receipt Date: 20201203
  Transmission Date: 20210114
  Serious: Yes (Other)
  Sender: FDA-Public Use
  Company Number: FR-BRISTOL-MYERS SQUIBB COMPANY-BMS-2020-100999

PATIENT
  Age: 92 Year
  Sex: Male
  Weight: 73 kg

DRUGS (22)
  1. CEFAZOLINE MYLAN [Suspect]
     Active Substance: CEFAZOLIN SODIUM
     Indication: SEPSIS
     Dosage: 1500 MILLIGRAM, QD
     Route: 042
     Dates: start: 20200928, end: 20201008
  2. CALCIDOSE [CALCIUM CARBONATE] [Concomitant]
     Active Substance: CALCIUM CARBONATE
     Indication: CALCIUM DEFICIENCY
     Dosage: 1000 MILLIGRAM, QD
     Route: 048
     Dates: start: 20201013
  3. FUROSEMIDE. [Concomitant]
     Active Substance: FUROSEMIDE
     Indication: HYPERTENSIVE HEART DISEASE
     Dosage: 500 MILLIGRAM, QD
     Route: 048
  4. DAPTOMYCINE ACCORD [Concomitant]
     Active Substance: DAPTOMYCIN
     Indication: ENDOCARDITIS
     Route: 042
     Dates: start: 20201008
  5. MOVICOL [Concomitant]
     Active Substance: POLYETHYLENE GLYCOL 3350\POTASSIUM CHLORIDE\SODIUM BICARBONATE\SODIUM CHLORIDE
     Indication: CONSTIPATION
     Dosage: 2 DOSAGE FORM, QD
     Route: 048
     Dates: start: 20201010
  6. HYPERIUM [Concomitant]
     Active Substance: RILMENIDINE PHOSPHATE
     Indication: HYPERTENSION
     Dosage: 2 MILLIGRAM, QD
     Route: 048
     Dates: end: 20201026
  7. EUPRESSYL [URAPIDIL] [Concomitant]
     Active Substance: URAPIDIL
     Indication: HYPERTENSION
     Dosage: 30 MILLIGRAM, QD
     Route: 048
  8. COUMADINE [Suspect]
     Active Substance: WARFARIN SODIUM
     Indication: ATRIAL FIBRILLATION
     Dosage: 850 MILLIGRAM, QD
     Route: 048
     Dates: start: 201812, end: 20201008
  9. GENTAMICINE PANPHARMA [Suspect]
     Active Substance: GENTAMICIN
     Indication: SEPSIS
     Dosage: 200 MILLIGRAM, QD
     Route: 042
     Dates: start: 20200927, end: 20200928
  10. CALCIPARINE [Suspect]
     Active Substance: HEPARIN CALCIUM
     Indication: THROMBOSIS PROPHYLAXIS
     Route: 058
     Dates: start: 20201010, end: 20201016
  11. CONTRAMAL [Concomitant]
     Active Substance: TRAMADOL HYDROCHLORIDE
     Indication: PAIN
     Dosage: 5 DOSAGE FORM
     Route: 048
     Dates: start: 20201010
  12. ELIQUIS [Suspect]
     Active Substance: APIXABAN
     Indication: CEREBROVASCULAR ACCIDENT PROPHYLAXIS
     Dosage: 5 MILLIGRAM, QD
     Route: 048
     Dates: start: 20201016, end: 20201018
  13. ROVAMYCINE [SPIRAMYCIN ADEPATE] [Suspect]
     Active Substance: SPIRAMYCIN ADIPATE
     Indication: SEPSIS
     Dosage: 1.5 MEGA-INTERNATIONAL UNIT, TID
     Route: 042
     Dates: start: 20200926, end: 20200927
  14. XATRAL [Concomitant]
     Active Substance: ALFUZOSIN
     Indication: PRODUCT USED FOR UNKNOWN INDICATION
     Dosage: 10 MILLIGRAM, QD
     Route: 048
  15. LOXEN L P [Concomitant]
     Active Substance: NICARDIPINE HYDROCHLORIDE
     Indication: HYPERTENSION
     Dosage: 100 MILLIGRAM, QD
     Route: 048
  16. SERESTA [Concomitant]
     Active Substance: OXAZEPAM
     Indication: ANXIETY
     Dosage: 25 MILLIGRAM, QD
     Route: 048
     Dates: start: 20201009, end: 20201019
  17. CEFTRIAXONE PANPHARMA [Suspect]
     Active Substance: CEFTRIAXONE
     Indication: SEPSIS
     Dosage: 1 GRAM, QD
     Route: 042
     Dates: start: 20200926, end: 20200927
  18. VANCOMYCINE SANDOZ [Suspect]
     Active Substance: VANCOMYCIN
     Indication: SEPSIS
     Route: 042
     Dates: start: 20200927, end: 20200928
  19. RIFAMPICINE [Concomitant]
     Active Substance: RIFAMPIN
     Indication: ENDOCARDITIS
     Dosage: 900 MILLIGRAM, QD
     Route: 048
     Dates: start: 20201008
  20. CHOLECALCIFEROL [Concomitant]
     Active Substance: CHOLECALCIFEROL
     Indication: VITAMIN SUPPLEMENTATION
     Dosage: UNK
     Route: 048
  21. DIFFU K [Concomitant]
     Active Substance: POTASSIUM CHLORIDE
     Indication: HYPOKALAEMIA
     Dosage: 1200 MILLIGRAM, QD
     Route: 048
     Dates: end: 20201010
  22. PARACETAMOL [Concomitant]
     Active Substance: ACETAMINOPHEN
     Indication: PAIN
     Dosage: 3 GRAM, QD
     Route: 048

REACTIONS (1)
  - Vascular purpura [Recovered/Resolved]

NARRATIVE: CASE EVENT DATE: 20201017
